FAERS Safety Report 4427096-5 (Version None)
Quarter: 2004Q3

REPORT INFORMATION
  Report Type: 
  Country: None (occurrence: None)
  Receive Date: 20040811
  Receipt Date: 20040726
  Transmission Date: 20050211
  Serious: Yes (Hospitalization, Other)
  Sender: FDA-Public Use
  Company Number: USA040773708

PATIENT
  Age: 67 Year
  Sex: Female

DRUGS (2)
  1. EVISTA [Suspect]
     Indication: OSTEOPOROSIS
     Dates: start: 19990101
  2. PROTONIX [Concomitant]

REACTIONS (6)
  - BACK PAIN [None]
  - BONE DENSITY DECREASED [None]
  - CHEST WALL PAIN [None]
  - DRUG INEFFECTIVE [None]
  - PELVIC FRACTURE [None]
  - SPINAL FRACTURE [None]
